FAERS Safety Report 4700942-3 (Version None)
Quarter: 2005Q2

REPORT INFORMATION
  Report Type: 
  Country: None (occurrence: None)
  Receive Date: 20050113
  Receipt Date: 20050113
  Transmission Date: 20051028
  Serious: Yes (Other)
  Sender: FDA-Public Use
  Company Number: None

PATIENT
  Age: 61 Year
  Sex: Female
  Weight: 63.05 kg

DRUGS (1)
  1. TICLID [Suspect]
     Indication: CAROTID ARTERY DISSECTION
     Dosage: 250MG  LIFETIME
     Dates: start: 19830801

REACTIONS (3)
  - DYSPHAGIA [None]
  - PHARMACEUTICAL PRODUCT COMPLAINT [None]
  - VOMITING [None]
